FAERS Safety Report 21262074 (Version 1)
Quarter: 2022Q3

REPORT INFORMATION
  Report Type: Report from Study
  Country: HU (occurrence: HU)
  Receive Date: 20220827
  Receipt Date: 20220827
  Transmission Date: 20221027
  Serious: Yes (Other)
  Sender: FDA-Public Use
  Company Number: HU-BAYER-2022P011962

PATIENT

DRUGS (3)
  1. RIVAROXABAN [Interacting]
     Active Substance: RIVAROXABAN
     Indication: Anticoagulant therapy
     Dosage: UNK
     Route: 048
  2. RIVAROXABAN [Interacting]
     Active Substance: RIVAROXABAN
     Indication: COVID-19
     Route: 048
  3. DARUNAVIR\RITONAVIR [Interacting]
     Active Substance: DARUNAVIR\RITONAVIR
     Indication: Antiviral treatment
     Dosage: UNK

REACTIONS (2)
  - Drug interaction [Unknown]
  - Off label use [Unknown]
